FAERS Safety Report 25100557 (Version 2)
Quarter: 2025Q1

REPORT INFORMATION
  Report Type: Spontaneous
  Country: IN (occurrence: US)
  Receive Date: 20250320
  Receipt Date: 20250327
  Transmission Date: 20250408
  Serious: No
  Sender: BAYER HEALTHCARE PHARMACEUTICALS INC.
  Company Number: IN-BAYER-2025A036237

PATIENT
  Age: 56 Year
  Sex: Female
  Weight: 91.9 kg

DRUGS (6)
  1. GADAVIST [Suspect]
     Active Substance: GADOBUTROL
     Indication: Magnetic resonance imaging
     Route: 042
     Dates: start: 20240816, end: 20240816
  2. GADAVIST [Suspect]
     Active Substance: GADOBUTROL
     Indication: Product used for unknown indication
  3. GADAVIST [Suspect]
     Active Substance: GADOBUTROL
     Indication: Osteoarthritis
  4. IBUPROFEN [Concomitant]
     Active Substance: IBUPROFEN
     Dates: start: 202210
  5. VOLTAREN [Concomitant]
     Active Substance: DICLOFENAC SODIUM
     Dates: start: 202301
  6. VEOZAH [Concomitant]
     Active Substance: FEZOLINETANT
     Dates: start: 202401

REACTIONS (1)
  - Administration site pain [Recovered/Resolved]

NARRATIVE: CASE EVENT DATE: 20240816
